FAERS Safety Report 9061691 (Version 2)
Quarter: 2013Q1

REPORT INFORMATION
  Report Type: Report from Study
  Country: JP (occurrence: JP)
  Receive Date: 20130204
  Receipt Date: 20130227
  Transmission Date: 20140127
  Serious: Yes (Hospitalization, Other)
  Sender: FDA-Public Use
  Company Number: JP-AMGEN-JPNCT2013007482

PATIENT
  Age: 59 Year
  Sex: Male
  Weight: 66 kg

DRUGS (38)
  1. DARBEPOETIN ALFA [Suspect]
     Indication: NEPHROGENIC ANAEMIA
     Dosage: 40 MUG, Q3WK
     Route: 058
     Dates: start: 20111101, end: 20111212
  2. DARBEPOETIN ALFA [Suspect]
     Dosage: 60 MUG, QD
     Route: 058
     Dates: start: 20111226, end: 20111226
  3. DARBEPOETIN ALFA [Suspect]
     Dosage: 60 MUG, Q2WK
     Route: 058
     Dates: start: 20120127, end: 20120403
  4. DARBEPOETIN ALFA [Suspect]
     Dosage: 60 MUG, QD
     Route: 058
     Dates: start: 20120424, end: 20120424
  5. DARBEPOETIN ALFA [Suspect]
     Dosage: 60 MUG, QWK
     Route: 058
     Dates: start: 20120605, end: 20120614
  6. DARBEPOETIN ALFA [Suspect]
     Dosage: 60 MUG, QD
     Route: 058
     Dates: start: 20120627, end: 20120627
  7. DARBEPOETIN ALFA [Suspect]
     Dosage: 120 MUG, QD
     Route: 058
     Dates: start: 20120711, end: 20120711
  8. DARBEPOETIN ALFA [Suspect]
     Dosage: 60 MUG, Q2WK
     Route: 058
     Dates: start: 20120801, end: 20120814
  9. DARBEPOETIN ALFA [Suspect]
     Dosage: 120 MUG, QD
     Route: 058
     Dates: start: 20120905, end: 20120905
  10. DARBEPOETIN ALFA [Suspect]
     Dosage: 60 MUG, Q2WK
     Route: 058
     Dates: start: 20120919, end: 20121003
  11. DARBEPOETIN ALFA [Suspect]
     Dosage: 60 MUG, Q2WK
     Route: 058
     Dates: start: 20121020, end: 20121102
  12. DARBEPOETIN ALFA [Suspect]
     Dosage: 120 MUG, Q2WK
     Route: 058
     Dates: start: 20121020, end: 20121102
  13. DARBEPOETIN ALFA [Suspect]
     Dosage: 120 MUG, Q2WK
     Route: 058
     Dates: start: 20121116
  14. URSO [Concomitant]
     Dosage: UNK
     Route: 048
  15. SODIUM RABEPRAZOLE [Concomitant]
     Dosage: UNK
     Route: 048
  16. BARACLUDE [Concomitant]
     Dosage: UNK
     Route: 048
  17. NU-LOTAN [Concomitant]
     Dosage: UNK
     Route: 048
  18. ALDACTONE A [Concomitant]
     Dosage: UNK
     Route: 048
  19. AMINOVACT [Concomitant]
     Dosage: UNK
     Route: 048
  20. JANUVIA [Concomitant]
     Indication: DIABETIC NEPHROPATHY
     Dosage: UNK
     Route: 048
  21. LUPRAC [Concomitant]
     Indication: DIABETIC NEPHROPATHY
     Dosage: UNK
     Route: 048
  22. NEUROVITAN [Concomitant]
     Indication: DIABETIC NEPHROPATHY
     Dosage: UNK
     Route: 048
  23. MONILAC [Concomitant]
     Indication: DIABETIC NEPHROPATHY
     Dosage: UNK
     Route: 048
  24. RESTAMIN CORTISONE [Concomitant]
     Dosage: UNK
  25. KANAMYCIN [Concomitant]
     Dosage: UNK
  26. EVAMYL [Concomitant]
     Dosage: UNK
  27. ALOSENN [Concomitant]
     Dosage: UNK
     Route: 048
  28. EQUA [Concomitant]
     Indication: DIABETIC NEPHROPATHY
     Dosage: UNK
     Route: 048
  29. ZOLPIDEM TARTRATE [Concomitant]
     Dosage: UNK
     Route: 048
  30. FLUITRAN [Concomitant]
     Dosage: UNK
     Route: 048
  31. ALLOZYM [Concomitant]
     Dosage: UNK
     Route: 048
  32. CONIEL [Concomitant]
     Dosage: UNK
     Route: 048
  33. OZEX [Concomitant]
     Dosage: UNK
     Route: 048
  34. NAUZELIN [Concomitant]
     Dosage: UNK
     Route: 048
  35. SOLDACTONE [Concomitant]
     Dosage: UNK
     Route: 042
  36. LASIX [Concomitant]
     Dosage: UNK
     Route: 042
  37. ALBUMINAR [Concomitant]
     Dosage: UNK
     Route: 042
  38. AMINOLEBAN [Concomitant]
     Dosage: UNK
     Route: 041

REACTIONS (3)
  - Hepatic encephalopathy [Recovered/Resolved]
  - Ascites [Not Recovered/Not Resolved]
  - Proteinuria [Recovered/Resolved]
